FAERS Safety Report 4399942-5 (Version None)
Quarter: 2004Q3

REPORT INFORMATION
  Report Type: 
  Country: None (occurrence: None)
  Receive Date: 20040714
  Receipt Date: 20040706
  Transmission Date: 20050211
  Serious: Yes (Other)
  Sender: FDA-Public Use
  Company Number: US013400

PATIENT
  Age: 23 Year
  Sex: Female

DRUGS (2)
  1. ALERTEC [Suspect]
     Dosage: 300 MG QD; ORAL
     Route: 048
  2. ALESSE [Concomitant]

REACTIONS (5)
  - DIARRHOEA [None]
  - DRY SKIN [None]
  - POLLAKIURIA [None]
  - SKIN DISORDER [None]
  - WEIGHT DECREASED [None]
